FAERS Safety Report 24238199 (Version 1)
Quarter: 2024Q3

REPORT INFORMATION
  Report Type: Spontaneous
  Country: US (occurrence: None)
  Receive Date: 20240821
  Receipt Date: 20240821
  Transmission Date: 20241017
  Serious: No
  Sender: Public
  Company Number: None

PATIENT
  Age: 39 Year
  Sex: Female
  Weight: 94.35 kg

DRUGS (1)
  1. STELARA [Suspect]
     Active Substance: USTEKINUMAB
     Indication: Psoriatic arthropathy
     Dosage: OTHER FREQUENCY : AT WEEK 0 + WEEK 4, AS DIRECTED;?
     Route: 058
     Dates: start: 202407

REACTIONS (2)
  - Emergency care [None]
  - Hospitalisation [None]
